FAERS Safety Report 9980158 (Version 1)
Quarter: 2014Q1

REPORT INFORMATION
  Report Type: Report from Study
  Country: US (occurrence: US)
  Receive Date: 20140307
  Receipt Date: 20140307
  Transmission Date: 20141002
  Serious: No
  Sender: FDA-Public Use
  Company Number: US-ABBVIE-13P-163-1174832-00

PATIENT
  Age: 48 Year
  Sex: Female

DRUGS (9)
  1. HUMIRA [Suspect]
     Indication: CROHN^S DISEASE
     Dates: start: 20131028, end: 20131028
  2. HUMIRA [Suspect]
     Dates: start: 20131029, end: 20131029
  3. HUMIRA [Suspect]
     Dates: start: 20131111, end: 20131111
  4. HUMIRA [Suspect]
     Dates: start: 20131125
  5. IMURAN [Concomitant]
     Indication: CROHN^S DISEASE
  6. DIOVAN [Concomitant]
     Indication: HYPERTENSION
  7. NEXIUM [Concomitant]
     Indication: GASTROOESOPHAGEAL REFLUX DISEASE
  8. PREDNISONE [Concomitant]
     Indication: PRODUCT USED FOR UNKNOWN INDICATION
  9. BENADRYL [Concomitant]
     Indication: PRODUCT USED FOR UNKNOWN INDICATION

REACTIONS (2)
  - Pruritus [Not Recovered/Not Resolved]
  - Urticaria [Not Recovered/Not Resolved]
